FAERS Safety Report 6970967-6 (Version None)
Quarter: 2010Q3

REPORT INFORMATION
  Report Type: 
  Country: None (occurrence: None)
  Receive Date: 20100908
  Receipt Date: 20100827
  Transmission Date: 20110219
  Serious: Yes (Other)
  Sender: FDA-Public Use
  Company Number: US-PFIZER INC-2010054200

PATIENT
  Sex: Female

DRUGS (24)
  1. CHANTIX [Suspect]
     Indication: SMOKING CESSATION THERAPY
     Dosage: UNK) STARTER MONTH PACK 0.5 AND 1MG
     Dates: start: 20080423, end: 20090101
  2. METFORMIN [Concomitant]
     Indication: DIABETES MELLITUS
     Dosage: UNK
     Dates: start: 19940101
  3. POTASSIUM CHLORIDE [Concomitant]
     Indication: HYPOKALAEMIA
     Dosage: UNK
     Dates: start: 20030101
  4. LASIX [Concomitant]
     Indication: OEDEMA
     Dosage: UNK
     Dates: start: 20030101, end: 20100101
  5. ACTOS [Concomitant]
     Indication: DIABETES MELLITUS
     Dosage: UNK
     Dates: start: 20030101
  6. FENOFIBRATE [Concomitant]
     Indication: HYPERLIPIDAEMIA
     Dosage: UNK
     Dates: start: 20010101
  7. TRAMADOL [Concomitant]
     Indication: OSTEOARTHRITIS
     Dosage: UNK
     Dates: start: 20010101
  8. RAMIPRIL [Concomitant]
     Indication: HYPERTENSION
     Dosage: UNK
     Dates: start: 20030101
  9. NEXIUM [Concomitant]
     Indication: GASTROOESOPHAGEAL REFLUX DISEASE
     Dosage: UNK
     Dates: start: 20030101
  10. DIFLUCAN [Concomitant]
     Indication: FUNGAL INFECTION
     Dosage: UNK
     Dates: start: 20020101, end: 20090101
  11. NORCO [Concomitant]
     Indication: OSTEOARTHRITIS
     Dosage: UNK
     Dates: start: 20060101
  12. COLACE [Concomitant]
     Indication: CONSTIPATION
     Dosage: UNK
     Dates: start: 19990101
  13. BENADRYL [Concomitant]
     Indication: MUSCULOSKELETAL STIFFNESS
     Dosage: UNK
     Dates: start: 20020101
  14. RESTORIL [Concomitant]
     Indication: INSOMNIA
     Dosage: UNK
     Dates: start: 20020101
  15. SEROQUEL [Concomitant]
     Indication: DEPRESSION
     Dosage: UNK
     Dates: start: 20060101
  16. SEROQUEL [Concomitant]
     Indication: BIPOLAR DISORDER
  17. HYDROCODONE [Concomitant]
     Indication: PAIN
     Dosage: UNK
     Dates: start: 20040101, end: 20100101
  18. PROMETHAZINE W/ CODEINE [Concomitant]
     Indication: COUGH
     Dosage: UNK
     Dates: start: 20010101, end: 20090101
  19. HUMULIN R [Concomitant]
     Indication: DIABETES MELLITUS
     Dosage: UNK
     Dates: start: 20070101, end: 20090101
  20. NICOTINE [Concomitant]
     Indication: SMOKING CESSATION THERAPY
     Dosage: UNK
     Dates: start: 20020101, end: 20090101
  21. NYSTATIN [Concomitant]
     Indication: ANTIFUNGAL TREATMENT
     Dosage: UNK
     Dates: start: 20060101, end: 20090101
  22. LANTUS [Concomitant]
     Indication: DIABETES MELLITUS
     Dosage: UNK
     Dates: start: 20020101
  23. ULTRAM [Concomitant]
     Indication: OSTEOARTHRITIS
     Dosage: UNK
     Dates: start: 20010101
  24. GLUCOPHAG [Concomitant]
     Indication: DIABETES MELLITUS
     Dosage: UNK
     Dates: start: 20020101

REACTIONS (7)
  - AGGRESSION [None]
  - ANXIETY [None]
  - DEPRESSION [None]
  - HALLUCINATION, AUDITORY [None]
  - INTENTIONAL OVERDOSE [None]
  - PARANOIA [None]
  - SUICIDE ATTEMPT [None]
